FAERS Safety Report 8837730 (Version 1)
Quarter: 2012Q4

REPORT INFORMATION
  Report Type: 
  Country: DE (occurrence: DE)
  Receive Date: 20121012
  Receipt Date: 20121012
  Transmission Date: 20130627
  Serious: Yes (Other)
  Sender: FDA-Public Use
  Company Number: PHHY2012DE087416

PATIENT
  Age: 76 Year
  Sex: Female
  Weight: 78 kg

DRUGS (1)
  1. FEMARA [Suspect]
     Indication: BREAST CANCER
     Dosage: UNK UKN, UNK

REACTIONS (1)
  - Liver disorder [Unknown]
